FAERS Safety Report 4932197-9 (Version None)
Quarter: 2006Q1

REPORT INFORMATION
  Report Type: 
  Country: None (occurrence: None)
  Receive Date: 20060228
  Receipt Date: 20060217
  Transmission Date: 20060701
  Serious: Yes (Other)
  Sender: FDA-Public Use
  Company Number: 2006025158

PATIENT
  Sex: Female
  Weight: 63.5036 kg

DRUGS (11)
  1. NEURONTIN [Suspect]
     Indication: PAIN
     Dates: start: 19990101
  2. LYRICA [Suspect]
     Indication: NEURALGIA
     Dosage: 75 MG (75 MG, 1 IN 1 D)
     Dates: start: 19990101
  3. EFFEXOR [Suspect]
     Indication: ANXIETY
     Dates: end: 20050301
  4. EFFEXOR [Suspect]
     Indication: DEPRESSION
     Dates: end: 20050301
  5. INTERFERON BETA-1A (INTERFERON BETA) [Suspect]
     Indication: MULTIPLE SCLEROSIS
     Dates: end: 20050301
  6. ULTRAM [Suspect]
     Indication: PAIN
  7. WELLBUTRIN [Suspect]
     Indication: ILL-DEFINED DISORDER
  8. ALL OTHER THERAPEUTIC PRODUCTS [Concomitant]
  9. PROZAC [Concomitant]
  10. DIURETICS [Concomitant]
  11. KLONOPIN [Concomitant]

REACTIONS (11)
  - AMNESIA [None]
  - CONFUSIONAL STATE [None]
  - CONTUSION [None]
  - ENERGY INCREASED [None]
  - HYPOTHYROIDISM [None]
  - PAIN [None]
  - PARAESTHESIA [None]
  - RIB FRACTURE [None]
  - SPINAL FRACTURE [None]
  - UPPER LIMB FRACTURE [None]
  - WEIGHT INCREASED [None]
